FAERS Safety Report 5265893-7 (Version None)
Quarter: 2007Q1

REPORT INFORMATION
  Report Type: 
  Country: None (occurrence: None)
  Receive Date: 20070315
  Receipt Date: 20070305
  Transmission Date: 20070707
  Serious: Yes (Hospitalization)
  Sender: FDA-Public Use
  Company Number: HQWYE822106MAR07

PATIENT
  Sex: Male

DRUGS (4)
  1. EFFEXOR XR [Suspect]
     Indication: DEPRESSION
     Dosage: TITRATED UP TO 225 MG DAILY
     Route: 048
     Dates: start: 20060901
  2. EFFEXOR XR [Suspect]
     Indication: ANXIETY
     Dosage: TAPERED DOWN TO 75 MG
     Route: 048
     Dates: end: 20070305
  3. LEXAPRO [Concomitant]
     Dosage: DOSE AND FREQUENCY UNSPECIFIED
  4. GEODON [Concomitant]
     Dosage: DOSE AND FREQUENCY UNSPECIFIED

REACTIONS (4)
  - DRUG WITHDRAWAL SYNDROME [None]
  - PARAESTHESIA [None]
  - SUICIDE ATTEMPT [None]
  - VOMITING [None]
